FAERS Safety Report 19841691 (Version 2)
Quarter: 2021Q3

REPORT INFORMATION
  Report Type: Spontaneous
  Country: US (occurrence: US)
  Receive Date: 20210916
  Receipt Date: 20210922
  Transmission Date: 20211014
  Serious: No
  Sender: FDA-Public Use
  Company Number: US-GW PHARMA-202109USGW04446

PATIENT

DRUGS (1)
  1. EPIDIOLEX [Suspect]
     Active Substance: CANNABIDIOL
     Indication: LENNOX-GASTAUT SYNDROME
     Dosage: 16.67 MG/KG/DAY, 120 MILLIGRAM, BID,
     Dates: start: 202101

REACTIONS (2)
  - Decreased activity [Unknown]
  - Weight increased [Unknown]

NARRATIVE: CASE EVENT DATE: 20210707
